FAERS Safety Report 8852469 (Version 1)
Quarter: 2012Q4

REPORT INFORMATION
  Report Type: Spontaneous
  Country: US (occurrence: None)
  Receive Date: 20121015
  Receipt Date: 20121015
  Transmission Date: 20130627
  Serious: Yes (Other)
  Sender: FDA-Public Use
  Company Number: 2012P1015621

PATIENT
  Age: 30 Year
  Sex: Female
  Weight: 86.18 kg

DRUGS (2)
  1. MAXAIR [Suspect]
     Indication: EXERCISE INDUCED ASTHMA
     Dosage: ;INH
     Route: 055
     Dates: start: 201006
  2. MAXAIR [Suspect]
     Indication: ALLERGIC ASTHMA
     Dosage: ;INH
     Route: 055
     Dates: start: 201006

REACTIONS (2)
  - Breast cancer [None]
  - Asthma [None]
